FAERS Safety Report 11455595 (Version 1)
Quarter: 2015Q3

REPORT INFORMATION
  Report Type: Spontaneous
  Country: US (occurrence: US)
  Receive Date: 20150903
  Receipt Date: 20150903
  Transmission Date: 20151125
  Serious: No
  Sender: FDA-Public Use
  Company Number: US-BEH-2014044339

PATIENT
  Sex: Male
  Weight: 97 kg

DRUGS (26)
  1. OXYGEN. [Concomitant]
     Active Substance: OXYGEN
  2. LANTUS [Concomitant]
     Active Substance: INSULIN GLARGINE
  3. TRIAMCINOLONE [Concomitant]
     Active Substance: TRIAMCINOLONE
  4. CRESTOR [Concomitant]
     Active Substance: ROSUVASTATIN CALCIUM
  5. ATROVENT [Concomitant]
     Active Substance: IPRATROPIUM BROMIDE
  6. PLAVIX [Concomitant]
     Active Substance: CLOPIDOGREL BISULFATE
  7. SYMBICORT [Concomitant]
     Active Substance: BUDESONIDE\FORMOTEROL FUMARATE DIHYDRATE
  8. NORCO [Concomitant]
     Active Substance: ACETAMINOPHEN\HYDROCODONE BITARTRATE
  9. ZEMAIRA [Suspect]
     Active Substance: .ALPHA.1-PROTEINASE INHIBITOR HUMAN
     Indication: ALPHA-1 ANTI-TRYPSIN DEFICIENCY
     Route: 042
  10. MULTIVITAMINS [Concomitant]
     Active Substance: VITAMINS
  11. GLUCOTROL [Concomitant]
     Active Substance: GLIPIZIDE
  12. DALIRESP [Concomitant]
     Active Substance: ROFLUMILAST
  13. LEVAQUIN [Concomitant]
     Active Substance: LEVOFLOXACIN
  14. GABAPENTIN. [Concomitant]
     Active Substance: GABAPENTIN
  15. COREG [Concomitant]
     Active Substance: CARVEDILOL
  16. ASPIRIN. [Concomitant]
     Active Substance: ASPIRIN
  17. ZYRTEC [Concomitant]
     Active Substance: CETIRIZINE HYDROCHLORIDE
  18. XOPENEX [Concomitant]
     Active Substance: LEVALBUTEROL HYDROCHLORIDE
  19. EPIPEN [Concomitant]
     Active Substance: EPINEPHRINE
  20. CARBIDOPA LEVO [Concomitant]
  21. SPIRIVA [Concomitant]
     Active Substance: TIOTROPIUM BROMIDE MONOHYDRATE
  22. HUMALOG [Concomitant]
     Active Substance: INSULIN LISPRO
  23. SINGULAIR [Concomitant]
     Active Substance: MONTELUKAST SODIUM
  24. FUROSEMIDE. [Concomitant]
     Active Substance: FUROSEMIDE
  25. CLONAZEPAM. [Concomitant]
     Active Substance: CLONAZEPAM
  26. SERTRALINE [Concomitant]
     Active Substance: SERTRALINE HYDROCHLORIDE

REACTIONS (3)
  - Local swelling [Unknown]
  - Erythema [Unknown]
  - Feeling hot [Unknown]
